FAERS Safety Report 11001772 (Version 3)
Quarter: 2015Q3

REPORT INFORMATION
  Report Type: Report from Study
  Country: JP (occurrence: JP)
  Receive Date: 20150408
  Receipt Date: 20150828
  Transmission Date: 20151125
  Serious: Yes (Hospitalization)
  Sender: FDA-Public Use
  Company Number: JP-PFIZER INC-2014027436

PATIENT
  Age: 55 Year
  Sex: Male
  Weight: 53.8 kg

DRUGS (15)
  1. CRIZOTINIB [Suspect]
     Active Substance: CRIZOTINIB
     Dosage: 250 MG, 2X/DAY
     Route: 048
     Dates: start: 20130410, end: 20130416
  2. CRIZOTINIB [Suspect]
     Active Substance: CRIZOTINIB
     Indication: NON-SMALL CELL LUNG CANCER
     Dosage: 250 MG, 2X/DAY
     Route: 048
     Dates: start: 20130225, end: 20130306
  3. CRIZOTINIB [Suspect]
     Active Substance: CRIZOTINIB
     Dosage: 500 MG (250 MG, 2X/DAY), ALTERNATE DAY
     Route: 048
     Dates: start: 20130504, end: 20130627
  4. MYDRIN P [Suspect]
     Active Substance: PHENYLEPHRINE HYDROCHLORIDE\TROPICAMIDE
     Dosage: ADEQUATE DOSE, 2X/DAY
     Route: 047
  5. CRIZOTINIB [Suspect]
     Active Substance: CRIZOTINIB
     Dosage: 250 MG, 2X/DAY
     Route: 048
     Dates: start: 20130425, end: 20130501
  6. LUMIGAN [Suspect]
     Active Substance: BIMATOPROST
     Dosage: ADEQUATE DOSE, 1X/DAY
     Dates: start: 20130716
  7. BRONUCK [Suspect]
     Active Substance: BROMFENAC SODIUM
     Dosage: ADEQUATE DOSE, 2X/DAY
     Route: 047
  8. COSOPT [Suspect]
     Active Substance: DORZOLAMIDE HYDROCHLORIDE\TIMOLOL MALEATE
     Dosage: ADEQUATE DOSE, 2X/DAY
     Dates: start: 20130716
  9. RINDERON V [Suspect]
     Active Substance: BETAMETHASONE VALERATE
     Dosage: ADEQUATE DOSE, 4X/DAY
     Route: 047
     Dates: end: 20130718
  10. AIPHAGAN [Suspect]
     Active Substance: BRIMONIDINE TARTRATE
     Dosage: ADEQUATE DOSE, 2X/DAY
     Dates: start: 20130716
  11. FLUMETHOLON [Suspect]
     Active Substance: FLUOROMETHOLONE
     Dosage: ADEQUATE DOSE, 4X/DAY
     Route: 047
     Dates: start: 20130718, end: 20131015
  12. CRIZOTINIB [Suspect]
     Active Substance: CRIZOTINIB
     Dosage: 250 MG, 2X/DAY
     Route: 048
     Dates: start: 20130314, end: 20130320
  13. CRAVIT [Suspect]
     Active Substance: LEVOFLOXACIN
     Dosage: ADEQUATE DOSE, 4X/DAY
     Route: 047
     Dates: end: 20131015
  14. CRIZOTINIB [Suspect]
     Active Substance: CRIZOTINIB
     Dosage: 250 MG, 2X/DAY
     Route: 048
     Dates: start: 20130327, end: 20130402
  15. CRIZOTINIB [Suspect]
     Active Substance: CRIZOTINIB
     Dosage: 500 MG(250 MG, 2X/DAY), ALTERNATE DAY
     Route: 048
     Dates: start: 20130713, end: 20130912

REACTIONS (2)
  - Glaucoma [Recovering/Resolving]
  - Oedema [Recovered/Resolved]

NARRATIVE: CASE EVENT DATE: 20130301
